FAERS Safety Report 4600693-X (Version None)
Quarter: 2005Q1

REPORT INFORMATION
  Report Type: 
  Country: None (occurrence: None)
  Receive Date: 20050304
  Receipt Date: 20050218
  Transmission Date: 20050727
  Serious: Yes (Other)
  Sender: FDA-Public Use
  Company Number: HQWYE416618FEB05

PATIENT
  Age: 55 Year
  Sex: Female

DRUGS (1)
  1. DIAMOX (ACETAZOLAMIDE, TABLET) LOT NO.: 26002 [Suspect]
     Indication: GLAUCOMA
     Dosage: 250 MG 1 X PER 1 DAY
     Route: 048
     Dates: start: 20030101, end: 20050127

REACTIONS (2)
  - CONVULSION [None]
  - DRUG WITHDRAWAL SYNDROME [None]
